FAERS Safety Report 4570953-X (Version None)
Quarter: 2005Q1

REPORT INFORMATION
  Report Type: 
  Country: None (occurrence: None)
  Receive Date: 20050204
  Receipt Date: 20041018
  Transmission Date: 20050727
  Serious: Yes (Life-Threatening, Hospitalization, Disabling)
  Sender: FDA-Public Use
  Company Number: US-MERCK-0410USA02618

PATIENT
  Age: 56 Year
  Sex: Male
  Weight: 98 kg

DRUGS (10)
  1. VIOXX [Suspect]
     Indication: BACK PAIN
     Route: 048
     Dates: start: 20010101, end: 20040930
  2. BENICAR [Concomitant]
     Indication: HYPERTENSION
     Route: 048
  3. CLARINEX [Concomitant]
     Route: 048
  4. PARAFON FORTE [Concomitant]
     Route: 065
  5. KLONOPIN [Concomitant]
     Route: 065
  6. ELAVIL [Concomitant]
     Route: 065
  7. DARVOCET-N 100 [Concomitant]
     Route: 065
  8. SINGULAIR [Concomitant]
     Route: 065
  9. ATROVENT [Concomitant]
     Route: 065
  10. TEQUIN [Concomitant]
     Route: 065

REACTIONS (9)
  - BRADYCARDIA [None]
  - BRONCHITIS [None]
  - CARDIAC VALVE DISEASE [None]
  - CHEST PAIN [None]
  - DYSPEPSIA [None]
  - DYSPNOEA [None]
  - HEART RATE IRREGULAR [None]
  - MYOCARDIAL INFARCTION [None]
  - NEPHROLITHIASIS [None]
